FAERS Safety Report 5104135-X (Version None)
Quarter: 2006Q3

REPORT INFORMATION
  Report Type: 
  Country: None (occurrence: None)
  Receive Date: 20060911
  Receipt Date: 19990407
  Transmission Date: 20061208
  Serious: Yes (Hospitalization)
  Sender: FDA-Public Use
  Company Number: 1999-002508

PATIENT
  Age: 26 Year
  Sex: Female

DRUGS (5)
  1. VIRACEPT [Suspect]
     Indication: PROPHYLAXIS
     Dosage: 7500 MG (UNKNOWN), ORAL
     Route: 048
  2. STAVUDINE [Suspect]
     Indication: PROPHYLAXIS
     Dosage: ORAL
     Route: 048
  3. LAMIVUDINE [Suspect]
     Indication: PROPHYLAXIS
     Dosage: ORAL
     Route: 048
  4. DIAZEPAM [Suspect]
     Indication: DRUG USE FOR UNKNOWN INDICATION
     Dosage: ORAL
     Route: 048
  5. ORAL CONTRACEPTIVE NOS (ORAL CONTRACEPTIVE NOS) [Concomitant]

REACTIONS (6)
  - DRUG EXPOSURE DURING PREGNANCY [None]
  - GLASGOW COMA SCALE ABNORMAL [None]
  - HYPOTENSION [None]
  - HYPOTHERMIA [None]
  - INTENTIONAL OVERDOSE [None]
  - PREGNANCY [None]
